FAERS Safety Report 14456895 (Version 1)
Quarter: 2018Q1

REPORT INFORMATION
  Report Type: Spontaneous
  Country: US (occurrence: US)
  Receive Date: 20180127
  Receipt Date: 20180127
  Transmission Date: 20180509
  Serious: No
  Sender: FDA-Public Use
  Company Number: None

PATIENT
  Age: 34 Year
  Sex: Female

DRUGS (10)
  1. ESOMEORA MAG [Concomitant]
  2. OXYCONIN [Concomitant]
  3. ENBREL [Suspect]
     Active Substance: ETANERCEPT
     Indication: GASTROOESOPHAGEAL REFLUX DISEASE
     Dosage: 1 PEN ONCE A WEEK SUBCUTANEOUS
     Route: 058
     Dates: start: 20180126
  4. CLONAZEPAM. [Concomitant]
     Active Substance: CLONAZEPAM
  5. LOW-OGESTREL [Concomitant]
     Active Substance: ETHINYL ESTRADIOL\NORGESTREL
  6. OXYCODONE [Concomitant]
     Active Substance: OXYCODONE
  7. PROMETHEGAN [Concomitant]
     Active Substance: PROMETHAZINE HYDROCHLORIDE
  8. CARISOPRODOL. [Concomitant]
     Active Substance: CARISOPRODOL
  9. GABAPENTIN. [Concomitant]
     Active Substance: GABAPENTIN
  10. OXAZEPAM. [Concomitant]
     Active Substance: OXAZEPAM

REACTIONS (3)
  - Vomiting [None]
  - Hypophagia [None]
  - Gastrointestinal infection [None]
